FAERS Safety Report 15985829 (Version 1)
Quarter: 2019Q1

REPORT INFORMATION
  Report Type: Spontaneous
  Country: US (occurrence: US)
  Receive Date: 20190220
  Receipt Date: 20190220
  Transmission Date: 20190418
  Serious: Yes (Hospitalization)
  Sender: FDA-Public Use
  Company Number: US-JNJFOC-20190216948

PATIENT
  Sex: Male
  Weight: 90.72 kg

DRUGS (1)
  1. INVEGA SUSTENNA [Suspect]
     Active Substance: PALIPERIDONE PALMITATE
     Indication: SCHIZOPHRENIA
     Route: 030

REACTIONS (9)
  - Adverse drug reaction [Unknown]
  - Erectile dysfunction [Unknown]
  - Impaired driving ability [Unknown]
  - Sedation [Unknown]
  - Feeling hot [Unknown]
  - Therapeutic response increased [Unknown]
  - Alcohol abuse [Unknown]
  - Spermatozoa abnormal [Unknown]
  - Abnormal behaviour [Unknown]
